FAERS Safety Report 25799082 (Version 1)
Quarter: 2025Q3

REPORT INFORMATION
  Report Type: Spontaneous
  Country: US (occurrence: US)
  Receive Date: 20250913
  Receipt Date: 20250913
  Transmission Date: 20251021
  Serious: Yes (Life-Threatening, Hospitalization, Other)
  Sender: ACCORD
  Company Number: US-MLMSERVICE-20240408-PI009046-00295-1

PATIENT
  Age: 55 Year
  Sex: Female

DRUGS (20)
  1. ROSUVASTATIN CALCIUM [Interacting]
     Active Substance: ROSUVASTATIN CALCIUM
     Indication: Product used for unknown indication
  2. SERTRALINE [Interacting]
     Active Substance: SERTRALINE HYDROCHLORIDE
     Indication: Depression
  3. BLACK COHOSH [Interacting]
     Active Substance: BLACK COHOSH
     Indication: Hot flush
     Dosage: AT BEDTIME
  4. DULOXETINE [Interacting]
     Active Substance: DULOXETINE
     Indication: Back pain
  5. MORPHINE [Interacting]
     Active Substance: MORPHINE
     Indication: Product used for unknown indication
     Dosage: 5 MG/ML DAILY, 0.8005 MG OF
     Route: 037
  6. FLUTICASONE PROPIONATE\SALMETEROL XINAFOATE [Concomitant]
     Active Substance: FLUTICASONE PROPIONATE\SALMETEROL XINAFOATE
     Dosage: 100-50 UG/DOSE
  7. DIPHENHYDRAMINE [Concomitant]
     Active Substance: DIPHENHYDRAMINE
  8. DICLOFENAC [Concomitant]
     Active Substance: DICLOFENAC
  9. ESTRADIOL [Concomitant]
     Active Substance: ESTRADIOL
  10. CETIRIZINE [Concomitant]
     Active Substance: CETIRIZINE HYDROCHLORIDE
  11. ETODOLAC [Concomitant]
     Active Substance: ETODOLAC
  12. INSULIN ASPART [Concomitant]
     Active Substance: INSULIN ASPART
     Route: 058
  13. LOSARTAN [Concomitant]
     Active Substance: LOSARTAN
  14. METOPROLOL [Concomitant]
     Active Substance: METOPROLOL
  15. OMEPRAZOLE [Concomitant]
     Active Substance: OMEPRAZOLE
  16. RIMEGEPANT [Concomitant]
     Active Substance: RIMEGEPANT
     Indication: Migraine
  17. TOPIRAMATE [Concomitant]
     Active Substance: TOPIRAMATE
  18. VALACYCLOVIR [Concomitant]
     Active Substance: VALACYCLOVIR HYDROCHLORIDE
  19. ZOLPIDEM [Concomitant]
     Active Substance: ZOLPIDEM TARTRATE
     Dosage: AT BEDTIME AS NEEDED
  20. MORPHINE [Interacting]
     Active Substance: MORPHINE
     Indication: Product used for unknown indication
     Dosage: BOLUSES, UP TO?4/DAY WITH A 2-H LOCK-OUT
     Route: 037

REACTIONS (10)
  - Rhabdomyolysis [Recovering/Resolving]
  - Mydriasis [Recovering/Resolving]
  - Agitation [Recovering/Resolving]
  - Clonus [Recovering/Resolving]
  - Hyperhidrosis [Recovering/Resolving]
  - Autonomic nervous system imbalance [Recovering/Resolving]
  - Hyperreflexia [Recovering/Resolving]
  - Disorientation [Recovering/Resolving]
  - Drug interaction [Recovered/Resolved]
  - Hepatocellular injury [Recovering/Resolving]
